FAERS Safety Report 5304878-9 (Version None)
Quarter: 2007Q2

REPORT INFORMATION
  Report Type: 
  Country: None (occurrence: None)
  Receive Date: 20070423
  Receipt Date: 20070416
  Transmission Date: 20071010
  Serious: Yes (Other)
  Sender: FDA-Public Use
  Company Number: FR-PFIZER INC-2007030173

PATIENT
  Sex: Male

DRUGS (1)
  1. AMLOR [Suspect]

REACTIONS (2)
  - POLLAKIURIA [None]
  - POLYURIA [None]
